FAERS Safety Report 4950514-0 (Version None)
Quarter: 2006Q1

REPORT INFORMATION
  Report Type: 
  Country: None (occurrence: None)
  Receive Date: 20060322
  Receipt Date: 20060310
  Transmission Date: 20060701
  Serious: Yes (Death)
  Sender: FDA-Public Use
  Company Number: MY-GLAXOSMITHKLINE-B0416222A

PATIENT
  Age: 55 Year
  Sex: Male

DRUGS (4)
  1. FONDAPARINUX [Suspect]
     Indication: ACUTE CORONARY SYNDROME
     Dosage: 2.5MG PER DAY
     Route: 058
     Dates: start: 20040415, end: 20040417
  2. STREPTASE [Concomitant]
     Dates: end: 20040415
  3. ISOSORBIDE DINITRATE [Concomitant]
  4. ASPIRIN [Concomitant]

REACTIONS (1)
  - CEREBROVASCULAR ACCIDENT [None]
